FAERS Safety Report 15508458 (Version 7)
Quarter: 2019Q2

REPORT INFORMATION
  Report Type: Report from Study
  Country: FR (occurrence: FR)
  Receive Date: 20181016
  Receipt Date: 20190530
  Transmission Date: 20190711
  Serious: Yes (Hospitalization)
  Sender: FDA-Public Use
  Company Number: FR-EISAI MEDICAL RESEARCH-EC-2018-046244

PATIENT
  Age: 64 Year
  Sex: Female
  Weight: 80 kg

DRUGS (9)
  1. AMLOR [Concomitant]
     Active Substance: AMLODIPINE BESYLATE
  2. RAMIPRIL. [Concomitant]
     Active Substance: RAMIPRIL
  3. INEXIUM [Concomitant]
     Active Substance: ESOMEPRAZOLE
  4. LEVOTHYROX [Concomitant]
     Active Substance: LEVOTHYROXINE
  5. LENVATINIB [Suspect]
     Active Substance: LENVATINIB
     Indication: THYROID CANCER
     Dosage: 24 MG OR 18 MG
     Route: 048
     Dates: start: 20180906, end: 20180926
  6. LENVATINIB [Suspect]
     Active Substance: LENVATINIB
     Dosage: 20 MG OR 14 MG
     Route: 048
     Dates: start: 20180927, end: 20181006
  7. LENVATINIB [Suspect]
     Active Substance: LENVATINIB
     Dosage: 20 MG OR 14 MG
     Route: 048
     Dates: start: 20181017, end: 20190211
  8. LENVATINIB [Suspect]
     Active Substance: LENVATINIB
     Dosage: 20 MG OR 14 MG
     Route: 048
     Dates: start: 20190213
  9. DAFALGAN CODEINE [Concomitant]
     Active Substance: ACETAMINOPHEN\CODEINE PHOSPHATE

REACTIONS (3)
  - General physical health deterioration [Recovered/Resolved]
  - Nausea [Recovered/Resolved]
  - Electrocardiogram abnormal [Recovered/Resolved]

NARRATIVE: CASE EVENT DATE: 20181009
